FAERS Safety Report 24695521 (Version 1)
Quarter: 2024Q4

REPORT INFORMATION
  Report Type: Spontaneous
  Country: BR (occurrence: BR)
  Receive Date: 20241204
  Receipt Date: 20241204
  Transmission Date: 20250115
  Serious: No
  Sender: ALKEM
  Company Number: BR-ALKEM LABORATORIES LIMITED-BR-ALKEM-2024-22701

PATIENT
  Sex: Female

DRUGS (2)
  1. METFORMIN HYDROCHLORIDE [Suspect]
     Active Substance: METFORMIN HYDROCHLORIDE
     Indication: Obesity
     Dosage: 850 MILLIGRAM, HS
     Route: 065
  2. TOPIRAMATE [Suspect]
     Active Substance: TOPIRAMATE
     Indication: Obesity
     Dosage: 25 MILLIGRAM
     Route: 065

REACTIONS (1)
  - Somnolence [Unknown]
